FAERS Safety Report 5182958-9 (Version None)
Quarter: 2006Q4

REPORT INFORMATION
  Report Type: 
  Country: None (occurrence: None)
  Receive Date: 20061220
  Receipt Date: 20060713
  Transmission Date: 20070319
  Serious: Yes (Other)
  Sender: FDA-Public Use
  Company Number: PHBS2006JP10586

PATIENT
  Age: 39 Year
  Sex: Male
  Weight: 87 kg

DRUGS (8)
  1. GLEEVEC [Suspect]
     Indication: BLAST CRISIS IN MYELOGENOUS LEUKAEMIA
     Dosage: 400 MG/D
     Route: 048
     Dates: start: 20060301, end: 20060410
  2. GLEEVEC [Suspect]
     Dosage: 600 MG/DAY
     Route: 048
     Dates: start: 20060411, end: 20060505
  3. GLEEVEC [Suspect]
     Route: 048
  4. OMNIPAQUE ^SANOFI WINTHROP^ [Suspect]
     Indication: COMPUTERISED TOMOGRAM
     Route: 042
     Dates: start: 20060506
  5. BACTRIM [Concomitant]
     Indication: FUNGAL INFECTION
     Dosage: 1 DF, QD
     Route: 048
     Dates: start: 20060425
  6. DIFLUCAN [Concomitant]
     Indication: FUNGAL INFECTION
     Dosage: 100 MG/D
     Route: 048
     Dates: start: 20060425
  7. PREDONINE [Concomitant]
     Indication: BLAST CRISIS IN MYELOGENOUS LEUKAEMIA
     Dosage: 30 MG/DAY
     Route: 048
     Dates: start: 20060411
  8. ONCOVIN [Suspect]
     Indication: BLAST CRISIS IN MYELOGENOUS LEUKAEMIA
     Dosage: 2 MG/D
     Route: 042
     Dates: start: 20060410, end: 20060501

REACTIONS (12)
  - ANURIA [None]
  - BLOOD CREATININE INCREASED [None]
  - BLOOD UREA INCREASED [None]
  - FLANK PAIN [None]
  - GENERALISED OEDEMA [None]
  - GLOMERULONEPHRITIS PROLIFERATIVE [None]
  - HAEMODIALYSIS [None]
  - INFLAMMATION [None]
  - INTESTINAL DILATATION [None]
  - NEPHRITIS [None]
  - RENAL FAILURE ACUTE [None]
  - THROMBOTIC MICROANGIOPATHY [None]
